FAERS Safety Report 5576472-6 (Version None)
Quarter: 2007Q4

REPORT INFORMATION
  Report Type: 
  Country: None (occurrence: None)
  Receive Date: 20071228
  Receipt Date: 20071221
  Transmission Date: 20080405
  Serious: Yes (Other)
  Sender: FDA-Public Use
  Company Number: FI-AVENTIS-200721420GDDC

PATIENT
  Age: 23 Year
  Sex: Female

DRUGS (3)
  1. KETEK [Suspect]
     Indication: PNEUMONIA
     Route: 048
     Dates: start: 20071106, end: 20071115
  2. REDOL COMP [Concomitant]
     Dosage: DOSE: UNK
     Route: 048
  3. IBUSAL [Concomitant]
     Dosage: DOSE: UNK
     Route: 048

REACTIONS (4)
  - ALANINE AMINOTRANSFERASE INCREASED [None]
  - ASPARTATE AMINOTRANSFERASE INCREASED [None]
  - GAMMA-GLUTAMYLTRANSFERASE INCREASED [None]
  - HEPATIC ENZYME INCREASED [None]
